FAERS Safety Report 14703321 (Version 1)
Quarter: 2018Q2

REPORT INFORMATION
  Report Type: Report from Study
  Country: US (occurrence: US)
  Receive Date: 20180402
  Receipt Date: 20180402
  Transmission Date: 20180711
  Serious: Yes (Other)
  Sender: FDA-Public Use
  Company Number: US-ROCHE-2095956

PATIENT

DRUGS (2)
  1. DIAZEPAM. [Suspect]
     Active Substance: DIAZEPAM
     Indication: EPILEPSY
     Route: 065
  2. CLONAZEPAM. [Suspect]
     Active Substance: CLONAZEPAM
     Indication: EPILEPSY
     Route: 065

REACTIONS (20)
  - Motor dysfunction [Unknown]
  - Weight increased [Unknown]
  - Diarrhoea [Unknown]
  - Blood sodium decreased [Unknown]
  - Crying [Unknown]
  - Decreased appetite [Unknown]
  - Apnoea [Unknown]
  - Ill-defined disorder [Unknown]
  - Insomnia [Unknown]
  - Mood swings [Unknown]
  - Bruxism [Unknown]
  - Asthenia [Unknown]
  - Lethargy [Unknown]
  - Muscle disorder [Unknown]
  - Headache [Unknown]
  - Irritability [Unknown]
  - Laboratory test abnormal [Unknown]
  - Aggression [Unknown]
  - Dizziness [Unknown]
  - Vomiting [Unknown]
